FAERS Safety Report 26022977 (Version 1)
Quarter: 2025Q4

REPORT INFORMATION
  Report Type: Spontaneous
  Country: EU (occurrence: EU)
  Receive Date: 20251110
  Receipt Date: 20251110
  Transmission Date: 20260118
  Serious: Yes (Other)
  Sender: ETHYPHARM
  Company Number: None

PATIENT
  Age: 45 Year
  Sex: Female

DRUGS (5)
  1. COCAINE [Suspect]
     Active Substance: COCAINE
     Route: 055
  2. COCAINE [Suspect]
     Active Substance: COCAINE
     Route: 042
  3. SKENAN [Suspect]
     Active Substance: MORPHINE SULFATE
     Route: 045
  4. BUPRENORPHINE [Suspect]
     Active Substance: BUPRENORPHINE
     Route: 045
  5. ALCOHOL [Suspect]
     Active Substance: ALCOHOL
     Route: 048

REACTIONS (3)
  - Drug abuse [Not Recovered/Not Resolved]
  - Suicidal ideation [Recovered/Resolved]
  - Product use issue [Not Recovered/Not Resolved]

NARRATIVE: CASE EVENT DATE: 20250807
